FAERS Safety Report 18437967 (Version 3)
Quarter: 2021Q2

REPORT INFORMATION
  Report Type: Other
  Country: CA (occurrence: CA)
  Receive Date: 20201029
  Receipt Date: 20210420
  Transmission Date: 20210717
  Serious: Yes (Other)
  Sender: FDA-Public Use
  Company Number: CA-CELLTRION INC.-2020CA029886

PATIENT

DRUGS (73)
  1. APO?AZATHIOPRINE [Suspect]
     Active Substance: AZATHIOPRINE
     Indication: RHEUMATOID ARTHRITIS
     Route: 065
  2. APO?LEFLUNOMIDE [Suspect]
     Active Substance: LEFLUNOMIDE
     Indication: PRODUCT USED FOR UNKNOWN INDICATION
     Dosage: 20.0 MILLIGRAM
     Route: 065
  3. CICLOSPORIN [Suspect]
     Active Substance: CYCLOSPORINE
     Indication: RHEUMATOID ARTHRITIS
     Route: 048
  4. CICLOSPORIN [Suspect]
     Active Substance: CYCLOSPORINE
     Dosage: UNK
     Route: 048
  5. HUMIRA [Suspect]
     Active Substance: ADALIMUMAB
     Indication: RHEUMATOID ARTHRITIS
     Dosage: 400.0 MILLIGRAM, 1 EVERY 1 WEEKS
     Route: 065
  6. HYDROXYCHLOROQUINE SULFATE. [Suspect]
     Active Substance: HYDROXYCHLOROQUINE SULFATE
     Dosage: 400 MG, 1 EVERY 1 DAYS
     Route: 048
  7. SIMPONI [Suspect]
     Active Substance: GOLIMUMAB
     Indication: RHEUMATOID ARTHRITIS
     Route: 065
  8. PREDNISONE. [Concomitant]
     Active Substance: PREDNISONE
     Indication: PRODUCT USED FOR UNKNOWN INDICATION
     Route: 048
  9. RITUXIMAB (UNKNOWN) [Suspect]
     Active Substance: RITUXIMAB
     Dosage: UNK
     Route: 065
  10. HYDROXYCHLOROQUINE SULFATE. [Suspect]
     Active Substance: HYDROXYCHLOROQUINE SULFATE
     Dosage: UNK
     Route: 048
  11. METHOTREXATE. [Suspect]
     Active Substance: METHOTREXATE
     Indication: RHEUMATOID ARTHRITIS
     Route: 058
  12. MYCOPHENOLATE MOFETIL. [Suspect]
     Active Substance: MYCOPHENOLATE MOFETIL
     Indication: RHEUMATOID ARTHRITIS
     Route: 065
  13. REMICADE [Suspect]
     Active Substance: INFLIXIMAB
     Indication: RHEUMATOID ARTHRITIS
     Dosage: 300.0 MILLIGRAM, 1 EVERY 1 WEEKS
     Route: 042
  14. SULFASALAZINE. [Suspect]
     Active Substance: SULFASALAZINE
     Indication: RHEUMATOID ARTHRITIS
     Route: 065
  15. RITUXIMAB (UNKNOWN) [Suspect]
     Active Substance: RITUXIMAB
     Dosage: UNK
     Route: 042
  16. AZATHIOPRINE. [Suspect]
     Active Substance: AZATHIOPRINE
     Indication: RHEUMATOID ARTHRITIS
     Route: 065
  17. GOLD [Suspect]
     Active Substance: GOLD
     Indication: RHEUMATOID ARTHRITIS
     Route: 065
  18. HUMIRA [Suspect]
     Active Substance: ADALIMUMAB
     Dosage: 40 MILLIGRAM
     Route: 058
  19. METHOTREXATE. [Suspect]
     Active Substance: METHOTREXATE
     Dosage: 300 MG
     Route: 042
  20. REMICADE [Suspect]
     Active Substance: INFLIXIMAB
     Indication: RHEUMATOID ARTHRITIS
     Dosage: 300 MILLIGRAM
     Route: 042
  21. SIMPONI [Suspect]
     Active Substance: GOLIMUMAB
     Indication: RHEUMATOID ARTHRITIS
     Route: 058
  22. SODIUM AUROTHIOMALATE [Suspect]
     Active Substance: GOLD SODIUM THIOMALATE
     Indication: RHEUMATOID ARTHRITIS
     Route: 065
  23. VARICELLA ZOSTER VACCINE LIVE [Suspect]
     Active Substance: VARICELLA-ZOSTER VIRUS STRAIN OKA/MERCK LIVE ANTIGEN
     Indication: PRODUCT USED FOR UNKNOWN INDICATION
     Route: 058
  24. ACTEMRA [Suspect]
     Active Substance: TOCILIZUMAB
     Dosage: 640.0 MILLIGRAM, 1 EVERY 1 MONTHS
     Route: 042
  25. ACTEMRA [Suspect]
     Active Substance: TOCILIZUMAB
     Indication: RHEUMATOID ARTHRITIS
     Dosage: 640.0 MILLIGRAM, 1 EVERY 4 WEEKS
     Route: 042
  26. AZATHIOPRINE. [Suspect]
     Active Substance: AZATHIOPRINE
     Indication: RHEUMATOID ARTHRITIS
     Route: 065
  27. CERTOLIZUMAB PEGOL [Suspect]
     Active Substance: CERTOLIZUMAB PEGOL
     Indication: PRODUCT USED FOR UNKNOWN INDICATION
     Dosage: 200.0 MILLIGRAM, 1 EVERY 2 WEEKS
     Route: 065
  28. CICLOSPORIN [Suspect]
     Active Substance: CYCLOSPORINE
     Dosage: UNK
     Route: 065
  29. ENBREL [Suspect]
     Active Substance: ETANERCEPT
     Indication: RHEUMATOID ARTHRITIS
     Dosage: 50.0 MILLIGRAM, 1 EVERY 1 WEEKS
     Route: 065
  30. HYDROXYCHLOROQUINE [Suspect]
     Active Substance: HYDROXYCHLOROQUINE
     Dosage: 200.0 MILLIGRAM, 2 EVERY 1 DAYS
     Route: 048
  31. HYDROXYCHLOROQUINE SULFATE. [Suspect]
     Active Substance: HYDROXYCHLOROQUINE SULFATE
     Dosage: 200.0 MILLIGRAM, 2 EVERY 1 DAYS
     Route: 048
  32. INFLIXIMAB [Suspect]
     Active Substance: INFLIXIMAB
     Indication: RHEUMATOID ARTHRITIS
     Dosage: 300 MILLIGRAM
     Route: 042
  33. PIROXICAM. [Concomitant]
     Active Substance: PIROXICAM
     Indication: PRODUCT USED FOR UNKNOWN INDICATION
     Route: 065
  34. ACTEMRA [Suspect]
     Active Substance: TOCILIZUMAB
     Indication: RHEUMATOID ARTHRITIS
     Dosage: 64.0 MILLIGRAM, 1 EVERY 1 WEEKS
     Route: 065
  35. CERTOLIZUMAB PEGOL [Suspect]
     Active Substance: CERTOLIZUMAB PEGOL
     Dosage: 200.0 MILLIGRAM, 1 EVERY 2 WEEKS
     Route: 065
  36. CERTOLIZUMAB PEGOL [Suspect]
     Active Substance: CERTOLIZUMAB PEGOL
     Dosage: 200 MILLIGRAM
     Route: 065
  37. CICLOSPORIN [Suspect]
     Active Substance: CYCLOSPORINE
     Dosage: UNK
     Route: 048
  38. CIMZIA [Suspect]
     Active Substance: CERTOLIZUMAB PEGOL
     Indication: RHEUMATOID ARTHRITIS
     Dosage: 200 MILLIGRAM
     Route: 058
  39. HUMIRA [Suspect]
     Active Substance: ADALIMUMAB
     Indication: RHEUMATOID ARTHRITIS
     Dosage: 40.0 MILLIGRAM, 1 EVERY 1 WEEKS
     Route: 058
  40. HYDROXYCHLOROQUINE [Suspect]
     Active Substance: HYDROXYCHLOROQUINE
     Indication: RHEUMATOID ARTHRITIS
     Dosage: 400.0 MILLIGRAM, 1 EVERY 1 WEEKS
     Route: 048
  41. HYDROXYCHLOROQUINE [Suspect]
     Active Substance: HYDROXYCHLOROQUINE
     Dosage: UNK
     Route: 065
  42. HYDROXYCHLOROQUINE  /00072603/ [Suspect]
     Active Substance: HYDROXYCHLOROQUINE SULFATE
     Indication: RHEUMATOID ARTHRITIS
     Route: 065
  43. HYDROXYCHLOROQUINE SULFATE. [Suspect]
     Active Substance: HYDROXYCHLOROQUINE SULFATE
     Indication: RHEUMATOID ARTHRITIS
     Dosage: 400.0 MILLIGRAM
     Route: 048
  44. FOLIC ACID. [Concomitant]
     Active Substance: FOLIC ACID
     Indication: PRODUCT USED FOR UNKNOWN INDICATION
     Dosage: 5.0 MILLIGRAM
     Route: 065
  45. ACTEMRA [Suspect]
     Active Substance: TOCILIZUMAB
     Dosage: 640.0 MILLIGRAM, 1 EVERY 1 WEEKS
     Route: 065
  46. CERTOLIZUMAB PEGOL [Suspect]
     Active Substance: CERTOLIZUMAB PEGOL
     Dosage: 200.0 MILLIGRAM, 1 EVERY 1 WEEKS
     Route: 058
  47. CICLOSPORIN [Suspect]
     Active Substance: CYCLOSPORINE
     Indication: RHEUMATOID ARTHRITIS
     Dosage: UNK
     Route: 048
  48. CIMZIA [Suspect]
     Active Substance: CERTOLIZUMAB PEGOL
     Indication: RHEUMATOID ARTHRITIS
     Dosage: 200.0 MILLIGRAM, 1 EVERY 1 WEEKS
     Route: 058
  49. HUMIRA [Suspect]
     Active Substance: ADALIMUMAB
     Dosage: 400.0 MILLIGRAM, 1 EVERY 1 WEEKS
     Route: 058
  50. HYDROXYCHLOROQUINE SULFATE. [Suspect]
     Active Substance: HYDROXYCHLOROQUINE SULFATE
     Dosage: 400.0 MILLIGRAM
     Route: 065
  51. METHOTREXATE. [Suspect]
     Active Substance: METHOTREXATE
     Indication: RHEUMATOID ARTHRITIS
     Dosage: 25.0 MILLIGRAM, 1 EVERY 1 WEEK
     Route: 048
  52. METHOTREXATE. [Suspect]
     Active Substance: METHOTREXATE
     Dosage: UNK
     Route: 048
  53. METHOTREXATE. [Suspect]
     Active Substance: METHOTREXATE
     Dosage: UNK
     Route: 065
  54. SULFASALAZINE. [Suspect]
     Active Substance: SULFASALAZINE
     Indication: RHEUMATOID ARTHRITIS
     Dosage: 500.0 MILLIGRAM
     Route: 065
  55. RITUXIMAB (UNKNOWN) [Suspect]
     Active Substance: RITUXIMAB
     Indication: RHEUMATOID ARTHRITIS
     Dosage: UNK
     Route: 065
  56. ARAVA [Suspect]
     Active Substance: LEFLUNOMIDE
     Dosage: 20.0 MILLIGRAM, 1 EVERY 1 WEEKS
     Route: 048
  57. CIMZIA [Suspect]
     Active Substance: CERTOLIZUMAB PEGOL
     Indication: RHEUMATOID ARTHRITIS
     Dosage: 200 MILLIGRAM, 1 EVERY 1 WEEK
     Route: 065
  58. LEFLUNOMIDE. [Suspect]
     Active Substance: LEFLUNOMIDE
     Indication: RHEUMATOID ARTHRITIS
     Dosage: UNK, 1 EVERY 1 DAY
     Route: 065
  59. METHOTREXATE. [Suspect]
     Active Substance: METHOTREXATE
     Dosage: UNK
     Route: 065
  60. ORENCIA [Suspect]
     Active Substance: ABATACEPT
     Indication: RHEUMATOID ARTHRITIS
     Dosage: 125 MG, 1 EVERY 1 DAY
     Route: 058
  61. ORENCIA [Suspect]
     Active Substance: ABATACEPT
     Dosage: UNK
     Route: 065
  62. PREGABALIN. [Suspect]
     Active Substance: PREGABALIN
     Indication: PRODUCT USED FOR UNKNOWN INDICATION
     Route: 065
  63. TOCILIZUMAB. [Suspect]
     Active Substance: TOCILIZUMAB
     Indication: PRODUCT USED FOR UNKNOWN INDICATION
     Dosage: 640.0 MILLIGRAM, 1 EVERY 1 WEEKS
     Route: 065
  64. XELJANZ [Suspect]
     Active Substance: TOFACITINIB CITRATE
     Indication: RHEUMATOID ARTHRITIS
     Dosage: 5.0 MILLIGRAM, 2 EVERY 1 DAY
     Route: 048
  65. ACTEMRA [Suspect]
     Active Substance: TOCILIZUMAB
     Dosage: UNK, 1 EVERY 1 WEEK
     Route: 065
  66. ARAVA [Suspect]
     Active Substance: LEFLUNOMIDE
     Indication: RHEUMATOID ARTHRITIS
     Dosage: 20.0 MILLIGRAM
     Route: 048
  67. ARAVA [Suspect]
     Active Substance: LEFLUNOMIDE
     Indication: RHEUMATOID ARTHRITIS
     Route: 065
  68. ENBREL [Suspect]
     Active Substance: ETANERCEPT
     Dosage: 50.0 MILLIGRAM
     Route: 065
  69. INFLIXIMAB [Suspect]
     Active Substance: INFLIXIMAB
     Indication: RHEUMATOID ARTHRITIS
     Dosage: 300.0 MILLIGRAM, 1 EVERY 1 WEEKS
     Route: 042
  70. LYRICA [Suspect]
     Active Substance: PREGABALIN
     Indication: PRODUCT USED FOR UNKNOWN INDICATION
     Route: 065
  71. METHOTREXATE. [Suspect]
     Active Substance: METHOTREXATE
     Indication: RHEUMATOID ARTHRITIS
     Dosage: 20.0 MILLIGRAM
     Route: 065
  72. ORENCIA [Suspect]
     Active Substance: ABATACEPT
     Indication: RHEUMATOID ARTHRITIS
     Route: 042
  73. TOFACITINIB CITRATE [Concomitant]
     Active Substance: TOFACITINIB CITRATE
     Indication: PRODUCT USED FOR UNKNOWN INDICATION
     Route: 065

REACTIONS (25)
  - Hypersensitivity [Not Recovered/Not Resolved]
  - Sciatica [Not Recovered/Not Resolved]
  - Therapeutic product effect incomplete [Not Recovered/Not Resolved]
  - Disease progression [Not Recovered/Not Resolved]
  - Pruritus [Not Recovered/Not Resolved]
  - Rash [Not Recovered/Not Resolved]
  - Drug ineffective [Not Recovered/Not Resolved]
  - Blood iron abnormal [Not Recovered/Not Resolved]
  - Laryngeal disorder [Not Recovered/Not Resolved]
  - Rheumatoid arthritis [Not Recovered/Not Resolved]
  - Weight decreased [Not Recovered/Not Resolved]
  - Stomatitis [Not Recovered/Not Resolved]
  - Drug intolerance [Not Recovered/Not Resolved]
  - Psoriatic arthropathy [Not Recovered/Not Resolved]
  - Nausea [Not Recovered/Not Resolved]
  - Pain [Not Recovered/Not Resolved]
  - Treatment failure [Not Recovered/Not Resolved]
  - Off label use [Not Recovered/Not Resolved]
  - Adverse event [Not Recovered/Not Resolved]
  - Product use issue [Not Recovered/Not Resolved]
  - Diarrhoea [Not Recovered/Not Resolved]
  - Therapeutic product effect decreased [Not Recovered/Not Resolved]
  - Condition aggravated [Not Recovered/Not Resolved]
  - Sinusitis [Not Recovered/Not Resolved]
  - Drug hypersensitivity [Not Recovered/Not Resolved]
